FAERS Safety Report 13371805 (Version 1)
Quarter: 2017Q1

REPORT INFORMATION
  Report Type: Spontaneous
  Country: US (occurrence: US)
  Receive Date: 20170325
  Receipt Date: 20170325
  Transmission Date: 20170429
  Serious: No
  Sender: FDA-Public Use
  Company Number: US-AMGEN-USASP2017042926

PATIENT
  Sex: Male

DRUGS (2)
  1. TYLENOL [Concomitant]
     Active Substance: ACETAMINOPHEN
     Dosage: UNK
  2. ENBREL [Suspect]
     Active Substance: ETANERCEPT
     Indication: ANKYLOSING SPONDYLITIS
     Dosage: UNK UNK, QWK, EVERY SUNDAY
     Route: 065

REACTIONS (8)
  - Vomiting [Unknown]
  - Dizziness [Unknown]
  - Pyrexia [Unknown]
  - Headache [Recovered/Resolved]
  - Asthenia [Unknown]
  - Disturbance in attention [Unknown]
  - Oropharyngeal pain [Unknown]
  - Throat irritation [Unknown]

NARRATIVE: CASE EVENT DATE: 20170312
